FAERS Safety Report 6409818-7 (Version None)
Quarter: 2009Q4

REPORT INFORMATION
  Report Type: 
  Country: None (occurrence: None)
  Receive Date: 20091021
  Receipt Date: 20091021
  Transmission Date: 20100525
  Serious: Yes (Other)
  Sender: FDA-Public Use
  Company Number: None

PATIENT
  Age: 11 Year
  Sex: Male
  Weight: 34.1 kg

DRUGS (2)
  1. TAMIFLU [Suspect]
     Indication: ASTHMA
     Dosage: TAMIFLU 60 MG BID PO
     Route: 048
     Dates: start: 20090930, end: 20091002
  2. TAMIFLU [Suspect]
     Indication: H1N1 INFLUENZA
     Dosage: TAMIFLU 60 MG BID PO
     Route: 048
     Dates: start: 20090930, end: 20091002

REACTIONS (5)
  - AFFECT LABILITY [None]
  - ANGER [None]
  - ANXIETY [None]
  - DISTURBANCE IN ATTENTION [None]
  - INAPPROPRIATE AFFECT [None]
